FAERS Safety Report 14616508 (Version 3)
Quarter: 2018Q4

REPORT INFORMATION
  Report Type: Report from Study
  Country: US (occurrence: US)
  Receive Date: 20180309
  Receipt Date: 20181130
  Transmission Date: 20190204
  Serious: Yes (Hospitalization, Other)
  Sender: FDA-Public Use
  Company Number: US-TEVA-2018-US-866073

PATIENT
  Age: 68 Year
  Sex: Female

DRUGS (6)
  1. ESTRADIOL. [Concomitant]
     Active Substance: ESTRADIOL
  2. COPAXONE [Suspect]
     Active Substance: GLATIRAMER ACETATE
     Indication: MULTIPLE SCLEROSIS
     Route: 058
     Dates: start: 20170825, end: 20180213
  3. TAMIFLU [Interacting]
     Active Substance: OSELTAMIVIR PHOSPHATE
     Route: 065
  4. COPAXONE [Interacting]
     Active Substance: GLATIRAMER ACETATE
     Route: 058
     Dates: start: 20180309
  5. COPAXONE [Interacting]
     Active Substance: GLATIRAMER ACETATE
     Route: 058
     Dates: start: 20180323
  6. FLONASE [Concomitant]
     Active Substance: FLUTICASONE PROPIONATE
     Dosage: SPRAY

REACTIONS (9)
  - Lethargy [Unknown]
  - Pyrexia [Unknown]
  - Drug interaction [Unknown]
  - Chills [Unknown]
  - Dyspnoea [Unknown]
  - Pneumonia [Unknown]
  - Myalgia [Unknown]
  - Muscle spasms [Unknown]
  - Decreased appetite [Unknown]

NARRATIVE: CASE EVENT DATE: 20180205
